FAERS Safety Report 15170276 (Version 2)
Quarter: 2018Q3

REPORT INFORMATION
  Report Type: Spontaneous
  Country: US (occurrence: US)
  Receive Date: 20180720
  Receipt Date: 20180810
  Transmission Date: 20181010
  Serious: No
  Sender: FDA-Public Use
  Company Number: US-PFIZER INC-2018293852

PATIENT
  Age: 12 Year
  Sex: Female

DRUGS (1)
  1. EUCRISA [Suspect]
     Active Substance: CRISABOROLE
     Indication: RASH
     Dosage: UNK

REACTIONS (3)
  - Drug ineffective for unapproved indication [Unknown]
  - Pruritus [Unknown]
  - Paraesthesia [Unknown]
